FAERS Safety Report 8274463-8 (Version None)
Quarter: 2012Q2

REPORT INFORMATION
  Report Type: 
  Country: None (occurrence: None)
  Receive Date: 20120411
  Receipt Date: 20120409
  Transmission Date: 20120825
  Serious: Yes (Life-Threatening, Hospitalization)
  Sender: FDA-Public Use
  Company Number: US-US-EMD SERONO, INC.-7110190

PATIENT
  Sex: Female

DRUGS (9)
  1. REBIF [Suspect]
     Route: 058
     Dates: start: 20120209
  2. VESICARE [Concomitant]
     Indication: BLADDER DISORDER
  3. CLONIDINE [Concomitant]
     Indication: HYPERTENSION
  4. NEXIUM [Concomitant]
     Indication: GASTRIC DISORDER
  5. NORVASC [Concomitant]
     Indication: HYPERTENSION
  6. REBIF [Suspect]
     Indication: MULTIPLE SCLEROSIS
     Route: 058
     Dates: start: 20080130, end: 20111001
  7. REBIF [Suspect]
     Route: 058
     Dates: start: 20120301
  8. EFFEXOR [Concomitant]
     Indication: PRODUCT USED FOR UNKNOWN INDICATION
  9. TOPAMAX [Concomitant]
     Indication: MIGRAINE

REACTIONS (4)
  - PNEUMONIA [None]
  - POSTOPERATIVE WOUND INFECTION [None]
  - IDIOPATHIC THROMBOCYTOPENIC PURPURA [None]
  - INTESTINAL PERFORATION [None]
